FAERS Safety Report 13009498 (Version 7)
Quarter: 2017Q1

REPORT INFORMATION
  Report Type: Report from Study
  Country: GB (occurrence: GB)
  Receive Date: 20161208
  Receipt Date: 20170320
  Transmission Date: 20170428
  Serious: Yes (Other)
  Sender: FDA-Public Use
  Company Number: GB-JNJFOC-20161022680

PATIENT
  Sex: Female

DRUGS (1)
  1. SIMPONI [Suspect]
     Active Substance: GOLIMUMAB
     Indication: PRODUCT USED FOR UNKNOWN INDICATION
     Route: 058

REACTIONS (8)
  - Drug effect decreased [Unknown]
  - Chest discomfort [Unknown]
  - Psoriasis [Unknown]
  - Angina pectoris [Unknown]
  - Alopecia [Unknown]
  - Nasopharyngitis [Unknown]
  - Headache [Unknown]
  - Lower respiratory tract infection [Recovering/Resolving]
